FAERS Safety Report 5996436-8 (Version None)
Quarter: 2008Q4

REPORT INFORMATION
  Report Type: 
  Country: None (occurrence: None)
  Receive Date: 20081212
  Receipt Date: 20081017
  Transmission Date: 20090506
  Serious: No
  Sender: FDA-Public Use
  Company Number: US-ABBOTT-08P-163-0482478-00

PATIENT
  Sex: Male
  Weight: 91.708 kg

DRUGS (12)
  1. HUMIRA [Suspect]
     Indication: RHEUMATOID ARTHRITIS
     Route: 058
     Dates: start: 20070101, end: 20081013
  2. HUMIRA [Suspect]
     Route: 058
     Dates: start: 20081013
  3. METHOTREXATE [Concomitant]
     Indication: RHEUMATOID ARTHRITIS
     Route: 048
     Dates: start: 20070101
  4. FOLIC ACID [Concomitant]
     Indication: DRUG USE FOR UNKNOWN INDICATION
     Route: 048
     Dates: start: 20070101
  5. TOCOPHERYL ACETATE [Concomitant]
     Indication: DRUG USE FOR UNKNOWN INDICATION
     Route: 048
  6. OXYCOCET [Concomitant]
     Indication: ARTHRALGIA
     Dosage: 10/650 MG PRN
     Route: 048
  7. LORADADINE [Concomitant]
     Indication: HYPERSENSITIVITY
     Route: 045
  8. ALBUTEROL SULFATE [Concomitant]
     Indication: HYPERSENSITIVITY
     Route: 055
  9. METOPROLOL [Concomitant]
     Indication: CARDIAC DISORDER
     Route: 048
  10. GLUCOSAMINE W/METHYLSULFONYLMETHANE [Concomitant]
     Indication: DRUG USE FOR UNKNOWN INDICATION
     Route: 048
  11. ACETYLSALICYLIC ACID SRT [Concomitant]
     Indication: DRUG USE FOR UNKNOWN INDICATION
     Route: 048
  12. TRAMADOL HCL [Concomitant]
     Indication: PAIN
     Route: 048

REACTIONS (1)
  - DRUG INEFFECTIVE [None]
